FAERS Safety Report 4946067-3 (Version None)
Quarter: 2006Q1

REPORT INFORMATION
  Report Type: 
  Country: None (occurrence: None)
  Receive Date: 20060316
  Receipt Date: 20060302
  Transmission Date: 20060701
  Serious: Yes (Hospitalization, Disabling)
  Sender: FDA-Public Use
  Company Number: US-MERCK-0603USA00906

PATIENT
  Age: 52 Year
  Sex: Male
  Weight: 118 kg

DRUGS (7)
  1. VIOXX [Suspect]
     Indication: ARTHRITIS
     Route: 048
     Dates: start: 20010801, end: 20040601
  2. CORGARD [Concomitant]
     Indication: HYPERTENSION
     Route: 065
  3. GLUCOPHAGE [Concomitant]
     Route: 065
  4. PREVACID [Concomitant]
     Route: 065
  5. TRICOR [Concomitant]
     Route: 065
  6. ASPIRIN [Concomitant]
     Route: 065
  7. INSULIN [Concomitant]
     Route: 065

REACTIONS (16)
  - ARTHRALGIA [None]
  - ATRIAL FIBRILLATION [None]
  - CELLULITIS [None]
  - CORONARY ARTERY DISEASE [None]
  - DIABETIC FOOT INFECTION [None]
  - DIABETIC NEPHROPATHY [None]
  - EJECTION FRACTION DECREASED [None]
  - INSULIN-REQUIRING TYPE II DIABETES MELLITUS [None]
  - MICROALBUMINURIA [None]
  - MYOCARDIAL INFARCTION [None]
  - OBESITY [None]
  - PERIPHERAL VASCULAR DISORDER [None]
  - RENAL DISORDER [None]
  - RENAL FAILURE ACUTE [None]
  - RENAL FAILURE CHRONIC [None]
  - STAPHYLOCOCCAL ABSCESS [None]
